FAERS Safety Report 6384692-6 (Version None)
Quarter: 2009Q3

REPORT INFORMATION
  Report Type: 
  Country: None (occurrence: None)
  Receive Date: 20090930
  Receipt Date: 20080922
  Transmission Date: 20100115
  Serious: Yes (Disabling, Other)
  Sender: FDA-Public Use
  Company Number: 2008VX001676

PATIENT
  Age: 76 Year
  Sex: Male
  Weight: 84.369 kg

DRUGS (5)
  1. EFUDEX [Suspect]
     Indication: ACTINIC KERATOSIS
     Dosage: BID, TOP
     Route: 061
     Dates: start: 20080702, end: 20080802
  2. ALTACE [Concomitant]
  3. SIMVASTATIN [Concomitant]
  4. TAMSULOSIN [Concomitant]
  5. ATENOLOL [Concomitant]

REACTIONS (6)
  - DERMATITIS [None]
  - MUSCLE STRAIN [None]
  - PRURITUS [None]
  - SCAB [None]
  - SKIN EXFOLIATION [None]
  - SKIN LESION [None]
